FAERS Safety Report 21397306 (Version 1)
Quarter: 2022Q3

REPORT INFORMATION
  Report Type: Spontaneous
  Country: US (occurrence: None)
  Receive Date: 20220929
  Receipt Date: 20220929
  Transmission Date: 20221026
  Serious: Yes (Other)
  Sender: FDA-Public Use
  Company Number: None

PATIENT
  Sex: Female

DRUGS (6)
  1. XELJANZ XR [Suspect]
     Active Substance: TOFACITINIB CITRATE
     Indication: Psoriatic arthropathy
     Dosage: 11 MG ORAL?TAKE 1 TABLET BY MOUTH DAILY. DO NOT CRUSH, CHEW OR SPLIT. SWALLOW WHOLE.?
     Route: 048
     Dates: start: 20220708
  2. CONTRAVE [Concomitant]
  3. FENOFIBRATE [Concomitant]
  4. TREMFYA [Concomitant]
  5. ONEPRESS [Concomitant]
  6. ZOLOFT [Concomitant]

REACTIONS (2)
  - Colon cancer [None]
  - Therapy interrupted [None]
